FAERS Safety Report 5943678-3 (Version None)
Quarter: 2008Q4

REPORT INFORMATION
  Report Type: 
  Country: None (occurrence: None)
  Receive Date: 20081104
  Receipt Date: 20081012
  Transmission Date: 20090506
  Serious: Yes (Death)
  Sender: FDA-Public Use
  Company Number: CHPA2008US17986

PATIENT
  Age: 48 Year
  Sex: Female

DRUGS (2)
  1. ACETAMINOPHEN AND DIPHENHYDRAMINE HYDROCHLORIDE [Suspect]
     Dosage: ORAL
     Route: 048
  2. OXYCODONE HCL [Suspect]
     Dosage: ORAL
     Route: 048

REACTIONS (1)
  - INTENTIONAL DRUG MISUSE [None]
